FAERS Safety Report 4620378-3 (Version None)
Quarter: 2005Q1

REPORT INFORMATION
  Report Type: 
  Country: None (occurrence: None)
  Receive Date: 20050328
  Receipt Date: 20050218
  Transmission Date: 20050727
  Serious: Yes (Life-Threatening, Hospitalization, Disabling)
  Sender: FDA-Public Use
  Company Number: NL-MERCK-0502NLD00047

PATIENT
  Age: 49 Year
  Sex: Female

DRUGS (2)
  1. FOSAMAX [Suspect]
     Indication: OSTEOPOROSIS
     Route: 048
     Dates: start: 20001001, end: 20041010
  2. [COMPOSITION UNSPECIFIED] [Concomitant]
     Indication: THROMBOSIS
     Route: 065

REACTIONS (7)
  - BLOOD DISORDER [None]
  - EMBOLISM [None]
  - HEADACHE [None]
  - LIVER DISORDER [None]
  - MENTAL DISORDER [None]
  - PULMONARY INFARCTION [None]
  - THROMBOSIS [None]
